FAERS Safety Report 9252878 (Version 1)
Quarter: 2013Q1

REPORT INFORMATION
  Report Type: Spontaneous
  Country: US (occurrence: None)
  Receive Date: 20130305
  Receipt Date: 20130305
  Transmission Date: 20140127
  Serious: Yes (Other)
  Sender: FDA-Public Use
  Company Number: 163-21880-12042615

PATIENT
  Age: 61 Year
  Sex: Female

DRUGS (5)
  1. REVLIMID [Suspect]
     Indication: PLASMA CELL MYELOMA
     Dosage: 15MG, 1 IN 1 D
     Route: 048
     Dates: start: 20120320, end: 20120521
  2. DEXAMETHASONE (DEXAMETHASONE) [Concomitant]
  3. AMLODIPINE-BENAZEPRIL (AMLODIPINE BESYLATE W/ BENAZEPRIL HYDROCHLOR) [Concomitant]
  4. MICARDIS (TELMISARTAN) [Concomitant]
  5. CRESTOR (ROSUVASTATIN) [Concomitant]

REACTIONS (4)
  - Anaemia [None]
  - Haemoglobin decreased [None]
  - Erythema of eyelid [None]
  - Vision blurred [None]
